FAERS Safety Report 9154636 (Version 1)
Quarter: 2013Q1

REPORT INFORMATION
  Report Type: Spontaneous
  Country: US (occurrence: None)
  Receive Date: 20130305
  Receipt Date: 20130305
  Transmission Date: 20140127
  Serious: Yes (Disabling, Other)
  Sender: FDA-Public Use
  Company Number: None

PATIENT
  Age: 73 Year
  Sex: Female
  Weight: 104.33 kg

DRUGS (2)
  1. SERTRALINE 100 MGS. - WESTWARD [Suspect]
     Indication: ANXIETY
     Route: 048
     Dates: start: 2010, end: 2012
  2. SERTRALINE 100 MGS - NORTHSTAR [Suspect]
     Indication: PROPHYLAXIS
     Route: 048

REACTIONS (7)
  - Fall [None]
  - Balance disorder [None]
  - Contusion [None]
  - Head injury [None]
  - Injury [None]
  - Amnesia [None]
  - Product substitution issue [None]
